FAERS Safety Report 6519072-3 (Version None)
Quarter: 2009Q4

REPORT INFORMATION
  Report Type: 
  Country: None (occurrence: None)
  Receive Date: 20091228
  Receipt Date: 20091217
  Transmission Date: 20100525
  Serious: Yes (Hospitalization, Other)
  Sender: FDA-Public Use
  Company Number: JP-ROCHE-607713

PATIENT
  Age: 84 Year
  Sex: Female
  Weight: 57 kg

DRUGS (1)
  1. BEVACIZUMAB [Suspect]
     Indication: NEOVASCULARISATION
     Dosage: NOTE: 1.25 MG IN THE RIGHT EYE AND 1.25 MG IN THE LEFT EYE. DOSAGE: 1.25 MG/0.05 ML.
     Route: 031
     Dates: start: 20081219, end: 20081219

REACTIONS (4)
  - EYE PAIN [None]
  - HYPOPYON [None]
  - OCULAR HYPERAEMIA [None]
  - VITREOUS OPACITIES [None]
